FAERS Safety Report 20887148 (Version 1)
Quarter: 2022Q2

REPORT INFORMATION
  Report Type: Spontaneous
  Country: US (occurrence: US)
  Receive Date: 20220528
  Receipt Date: 20220528
  Transmission Date: 20220721
  Serious: Yes (Hospitalization, Other)
  Sender: FDA-Public Use
  Company Number: US-UNITED THERAPEUTICS-UNT-2022-011350

PATIENT
  Sex: Female

DRUGS (2)
  1. ORENITRAM [Suspect]
     Active Substance: TREPROSTINIL
     Indication: Product used for unknown indication
     Dosage: UNK
     Route: 048
     Dates: start: 20220129
  2. ORENITRAM [Suspect]
     Active Substance: TREPROSTINIL
     Dosage: UNK, TID
     Route: 048

REACTIONS (2)
  - Clostridium difficile infection [Unknown]
  - Fluid retention [Unknown]
